FAERS Safety Report 5796850-X (Version None)
Quarter: 2008Q2

REPORT INFORMATION
  Report Type: 
  Country: None (occurrence: None)
  Receive Date: 20080627
  Receipt Date: 20080623
  Transmission Date: 20081010
  Serious: Yes (Death)
  Sender: FDA-Public Use
  Company Number: 163-20785-08041432

PATIENT
  Age: 84 Year
  Sex: Female

DRUGS (1)
  1. THALOMID [Suspect]
     Indication: MULTIPLE MYELOMA
     Dosage: 200MG-100MG-50 MG, 1 IN 1 D, ORAL
     Route: 048
     Dates: start: 20061121, end: 20080408

REACTIONS (1)
  - CARDIOVASCULAR DISORDER [None]
